FAERS Safety Report 6800945-9 (Version None)
Quarter: 2010Q2

REPORT INFORMATION
  Report Type: 
  Country: None (occurrence: None)
  Receive Date: 20100629
  Receipt Date: 20100624
  Transmission Date: 20101027
  Serious: Yes (Death, Life-Threatening, Hospitalization)
  Sender: FDA-Public Use
  Company Number: PHHY2010US41602

PATIENT
  Sex: Female
  Weight: 36 kg

DRUGS (1)
  1. EXJADE [Suspect]
     Indication: BONE MARROW TRANSPLANT
     Dosage: 750 MG, DAILY
     Route: 048
     Dates: start: 20090619, end: 20100503

REACTIONS (3)
  - GASTROINTESTINAL ULCER [None]
  - HAEMATEMESIS [None]
  - NEUROBLASTOMA [None]
